FAERS Safety Report 6128958-3 (Version None)
Quarter: 2009Q1

REPORT INFORMATION
  Report Type: 
  Country: None (occurrence: None)
  Receive Date: 20090324
  Receipt Date: 20090313
  Transmission Date: 20090719
  Serious: Yes (Other)
  Sender: FDA-Public Use
  Company Number: PHHY2009TR09407

PATIENT
  Age: 42 Year
  Sex: Male

DRUGS (4)
  1. CYCLOSPORINE [Suspect]
     Indication: BEHCET'S SYNDROME
     Dosage: 2.5 MG/KG/D (200)
  2. CYCLOSPORINE [Suspect]
     Indication: UVEITIS
  3. MYCOPHENOLATE MOFETIL [Concomitant]
     Indication: BEHCET'S SYNDROME
     Dosage: 2000
  4. MYCOPHENOLATE MOFETIL [Concomitant]
     Indication: UVEITIS

REACTIONS (2)
  - BEHCET'S SYNDROME [None]
  - BRAIN STEM SYNDROME [None]
